FAERS Safety Report 8049296-8 (Version None)
Quarter: 2012Q1

REPORT INFORMATION
  Report Type: 
  Country: None (occurrence: None)
  Receive Date: 20120117
  Receipt Date: 20120112
  Transmission Date: 20120608
  Serious: Yes (Hospitalization)
  Sender: FDA-Public Use
  Company Number: BE-ROCHE-762264

PATIENT
  Sex: Female
  Weight: 48 kg

DRUGS (3)
  1. OXALIPLATIN [Suspect]
     Indication: RECTAL CANCER
     Dosage: 50 MG/M2 I.V ON D1,2,15,22 AND 29. LAST DOSE PRIOR TO SAE: 08 DEC 2010.
     Route: 042
     Dates: start: 20101110, end: 20101210
  2. ZURCALE [Concomitant]
     Route: 048
     Dates: start: 20100922, end: 20101007
  3. XELODA [Suspect]
     Indication: RECTAL CANCER
     Dosage: 825 MG/M2 P.O BID D1-33 W/O WEEKENDS+OPTIONAL BOOST.LAST DOSE PRIOR TO SAE:9 DEC 2010
     Route: 048
     Dates: start: 20101110, end: 20101210

REACTIONS (2)
  - HYPOKALAEMIA [None]
  - GENERAL PHYSICAL HEALTH DETERIORATION [None]
